FAERS Safety Report 23158202 (Version 1)
Quarter: 2023Q4

REPORT INFORMATION
  Report Type: Spontaneous
  Country: ES (occurrence: ES)
  Receive Date: 20231108
  Receipt Date: 20231108
  Transmission Date: 20240109
  Serious: Yes (Hospitalization, Other)
  Sender: FDA-Public Use
  Company Number: ES-GLAXOSMITHKLINE-ES2023GSK152601

PATIENT

DRUGS (9)
  1. EPOPROSTENOL [Suspect]
     Active Substance: EPOPROSTENOL
     Indication: Pulmonary arterial hypertension
     Dosage: UNK
     Route: 042
  2. EPOPROSTENOL [Suspect]
     Active Substance: EPOPROSTENOL
     Dosage: TITRATED UP TO 9 NG/KG/MIN
     Route: 042
  3. OXYGEN [Concomitant]
     Active Substance: OXYGEN
     Indication: Acute respiratory failure
     Dosage: 60 L PER MIN
  4. SILDENAFIL [Concomitant]
     Active Substance: SILDENAFIL
     Indication: Vasodilatation
     Dosage: 40 MG, TID
  5. MACITENTAN [Concomitant]
     Active Substance: MACITENTAN
     Indication: Vasodilatation
     Dosage: 10 MG, QD
  6. SPIRONOLACTONE [Concomitant]
     Active Substance: SPIRONOLACTONE
     Indication: Vasodilatation
     Dosage: 25 MG, QD
  7. SACUBITRIL\VALSARTAN [Concomitant]
     Active Substance: SACUBITRIL\VALSARTAN
     Indication: Product used for unknown indication
     Dosage: UNK UNK, BID
  8. TORSEMIDE [Concomitant]
     Active Substance: TORSEMIDE
     Indication: Product used for unknown indication
     Dosage: 5 MG, QD
  9. AMIODARONE [Concomitant]
     Active Substance: AMIODARONE
     Indication: Product used for unknown indication
     Dosage: 200 MG, QD

REACTIONS (6)
  - Respiratory failure [Recovered/Resolved]
  - Acute pulmonary oedema [Recovered/Resolved]
  - Vasodilatation [Recovered/Resolved]
  - Pulmonary arterial hypertension [Unknown]
  - Pulmonary congestion [Unknown]
  - Neovascularisation [Recovered/Resolved]
